FAERS Safety Report 6215181-7 (Version None)
Quarter: 2009Q2

REPORT INFORMATION
  Report Type: 
  Country: None (occurrence: None)
  Receive Date: 20090529
  Receipt Date: 20090520
  Transmission Date: 20091009
  Serious: Yes (Hospitalization)
  Sender: FDA-Public Use
  Company Number: 20090182

PATIENT
  Age: 78 Year
  Sex: Male

DRUGS (4)
  1. VENOFER [Suspect]
     Dosage: 400 MG INTRAVENOUS
     Route: 042
     Dates: start: 20090402, end: 20090402
  2. ROCEPHIN [Concomitant]
  3. FLAGYL [Concomitant]
  4. RED BLOOD CELL TRANSFUSION [Concomitant]

REACTIONS (3)
  - LYMPHADENOPATHY [None]
  - LYMPHOCYTOSIS [None]
  - PYREXIA [None]
